FAERS Safety Report 11019198 (Version 2)
Quarter: 2015Q2

REPORT INFORMATION
  Report Type: Spontaneous
  Country: US (occurrence: US)
  Receive Date: 20150412
  Receipt Date: 20150525
  Transmission Date: 20150821
  Serious: Yes (Other)
  Sender: FDA-Public Use
  Company Number: US-JNJFOC-20130913427

PATIENT
  Weight: 158.76 kg

DRUGS (2)
  1. LEVAQUIN [Suspect]
     Active Substance: LEVOFLOXACIN
     Indication: PNEUMONIA STREPTOCOCCAL
     Dosage: FOR 5 DAYS
     Route: 065
  2. LEVAQUIN [Suspect]
     Active Substance: LEVOFLOXACIN
     Indication: PNEUMONIA STREPTOCOCCAL
     Dosage: 5 DAYS
     Route: 065

REACTIONS (1)
  - Drug ineffective [Not Recovered/Not Resolved]
